FAERS Safety Report 12607569 (Version 1)
Quarter: 2016Q3

REPORT INFORMATION
  Report Type: Spontaneous
  Country: BR (occurrence: BR)
  Receive Date: 20160729
  Receipt Date: 20160729
  Transmission Date: 20161109
  Serious: Yes (Life-Threatening)
  Sender: FDA-Public Use
  Company Number: PHHY2016BR104244

PATIENT
  Sex: Male

DRUGS (6)
  1. ONBREZ BREEZHALER [Suspect]
     Active Substance: INDACATEROL
     Indication: EMPHYSEMA
  2. ONBREZ BREEZHALER [Suspect]
     Active Substance: INDACATEROL
     Indication: RESPIRATORY DISORDER
     Route: 065
  3. SEEBRI BREEZHALER [Suspect]
     Active Substance: GLYCOPYRROLATE
     Indication: EMPHYSEMA
  4. SEEBRI BREEZHALER [Suspect]
     Active Substance: GLYCOPYRROLATE
     Indication: PNEUMONECTOMY
  5. ONBREZ BREEZHALER [Suspect]
     Active Substance: INDACATEROL
     Indication: PNEUMONECTOMY
  6. SEEBRI BREEZHALER [Suspect]
     Active Substance: GLYCOPYRROLATE
     Indication: RESPIRATORY DISORDER
     Route: 065

REACTIONS (3)
  - Asthenia [Unknown]
  - Product use issue [Unknown]
  - Apparent death [Unknown]
